FAERS Safety Report 8127259 (Version 3)
Quarter: 2013Q1

REPORT INFORMATION
  Report Type: Report from Study
  Country: NL (occurrence: NL)
  Receive Date: 20110908
  Receipt Date: 20130318
  Transmission Date: 20140127
  Serious: Yes (Hospitalization, Other)
  Sender: FDA-Public Use
  Company Number: NL-BAXTER-2011BH028339

PATIENT
  Age: 68 None
  Sex: Male

DRUGS (3)
  1. KIOVIG 100 MG/ML SOLUTION POUR PERFUSION (20 G/200 ML) [Suspect]
     Indication: MULTIPLE SCLEROSIS
     Route: 042
     Dates: start: 20110804
  2. KIOVIG 100 MG/ML SOLUTION POUR PERFUSION (20 G/200 ML) [Suspect]
     Indication: OFF LABEL USE
     Route: 042
     Dates: start: 20110831
  3. KIOVIG 100 MG/ML SOLUTION POUR PERFUSION (20 G/200 ML) [Suspect]
     Route: 042
     Dates: start: 20091216

REACTIONS (3)
  - Arrhythmia [Recovered/Resolved]
  - Hospitalisation [Recovered/Resolved]
  - Wrong drug administered [Recovered/Resolved]
